FAERS Safety Report 4345986-9 (Version None)
Quarter: 2004Q2

REPORT INFORMATION
  Report Type: 
  Country: None (occurrence: None)
  Receive Date: 20040426
  Receipt Date: 20040416
  Transmission Date: 20050107
  Serious: Yes (Hospitalization)
  Sender: FDA-Public Use
  Company Number: PHEH2004US04324

PATIENT
  Age: 4 Month
  Sex: Male

DRUGS (1)
  1. ELIDEL [Suspect]
     Indication: DERMATITIS ATOPIC
     Dosage: UNK, BID
     Route: 061
     Dates: start: 20040301

REACTIONS (3)
  - MUCOUS MEMBRANE DISORDER [None]
  - RESPIRATORY ARREST [None]
  - RHINORRHOEA [None]
